FAERS Safety Report 14172514 (Version 1)
Quarter: 2017Q4

REPORT INFORMATION
  Report Type: Spontaneous
  Country: PL (occurrence: PL)
  Receive Date: 20171109
  Receipt Date: 20171109
  Transmission Date: 20180321
  Serious: Yes (Other)
  Sender: FDA-Public Use
  Company Number: PL-ACCORD-060929

PATIENT
  Age: 60 Year
  Sex: Female
  Weight: 50.5 kg

DRUGS (2)
  1. OXALIPLATIN ACCORD [Suspect]
     Active Substance: OXALIPLATIN
     Indication: COLON CANCER
     Dosage: DOSE: 211, UNIT NOT SPECIFIED
     Route: 042
     Dates: start: 20170523, end: 20170523
  2. CAPECITABINE ACCORD [Concomitant]
     Active Substance: CAPECITABINE
     Indication: COLON CANCER
     Route: 048
     Dates: start: 20170523, end: 20170523

REACTIONS (3)
  - Stridor [Recovered/Resolved]
  - Dyspnoea [Recovered/Resolved]
  - Hypersensitivity [Recovered/Resolved]

NARRATIVE: CASE EVENT DATE: 20170523
